FAERS Safety Report 13113111 (Version 1)
Quarter: 2017Q1

REPORT INFORMATION
  Report Type: Spontaneous
  Country: US (occurrence: US)
  Receive Date: 20170112
  Receipt Date: 20170112
  Transmission Date: 20170428
  Serious: Yes (Life-Threatening, Hospitalization)
  Sender: FDA-Public Use
  Company Number: None

PATIENT
  Age: 12 Year
  Sex: Male
  Weight: 31.5 kg

DRUGS (2)
  1. LAMICTAL [Suspect]
     Active Substance: LAMOTRIGINE
     Indication: DEPRESSION
     Dates: start: 20161212, end: 20170106
  2. LAMICTAL [Suspect]
     Active Substance: LAMOTRIGINE
     Indication: OFF LABEL USE
     Dates: start: 20161212, end: 20170106

REACTIONS (3)
  - Stevens-Johnson syndrome [None]
  - Haemorrhage [None]
  - Feeding disorder [None]

NARRATIVE: CASE EVENT DATE: 20170105
